FAERS Safety Report 7561702-1 (Version None)
Quarter: 2011Q2

REPORT INFORMATION
  Report Type: 
  Country: None (occurrence: None)
  Receive Date: 20110621
  Receipt Date: 20110324
  Transmission Date: 20111010
  Serious: No
  Sender: FDA-Public Use
  Company Number: US-ASTRAZENECA-2010SE46695

PATIENT
  Age: 65 Year
  Sex: Female

DRUGS (8)
  1. BONIVA [Concomitant]
  2. ATACAND HCT [Suspect]
     Dosage: 32/12.5 MG
     Route: 048
  3. CRESTOR [Suspect]
     Route: 048
     Dates: start: 20080908
  4. RHINOCORT [Suspect]
     Indication: HYPERSENSITIVITY
     Route: 045
  5. NEXIUM [Suspect]
     Route: 048
  6. ACCOLATE [Suspect]
     Route: 048
  7. SYMBICORT [Suspect]
     Route: 055
  8. ATACAND [Suspect]
     Route: 048

REACTIONS (15)
  - PAIN [None]
  - NASAL DRYNESS [None]
  - RHINORRHOEA [None]
  - DRUG DOSE OMISSION [None]
  - FALL [None]
  - MALAISE [None]
  - FEELING ABNORMAL [None]
  - COUGH [None]
  - MUSCLE SPASMS [None]
  - DRUG HYPERSENSITIVITY [None]
  - DIZZINESS [None]
  - MUSCULAR WEAKNESS [None]
  - INCORRECT DOSE ADMINISTERED [None]
  - HEADACHE [None]
  - SINUSITIS [None]
